FAERS Safety Report 9393736 (Version 4)
Quarter: 2014Q2

REPORT INFORMATION
  Report Type: Report from Study
  Country: UA (occurrence: UA)
  Receive Date: 20130710
  Receipt Date: 20140521
  Transmission Date: 20141212
  Serious: Yes (Life-Threatening)
  Sender: FDA-Public Use
  Company Number: UA-009507513-1307UKR003983

PATIENT
  Age: 81 Year
  Sex: Male
  Weight: 67 kg

DRUGS (1)
  1. EZETIMIBE (+) SIMVASTATIN [Suspect]
     Indication: ACUTE CORONARY SYNDROME
     Dosage: 10/40 MG
     Route: 048
     Dates: start: 20091214

REACTIONS (1)
  - Lung neoplasm malignant [Not Recovered/Not Resolved]
